FAERS Safety Report 7715927-2 (Version None)
Quarter: 2011Q3

REPORT INFORMATION
  Report Type: 
  Country: None (occurrence: None)
  Receive Date: 20110829
  Receipt Date: 20110822
  Transmission Date: 20111222
  Serious: Yes (Hospitalization)
  Sender: FDA-Public Use
  Company Number: BR-SANOFI-AVENTIS-2011SA054234

PATIENT
  Age: 88 Year
  Sex: Male
  Weight: 87 kg

DRUGS (7)
  1. LANTUS [Suspect]
     Dates: start: 20090101
  2. METFORMIN HYDROCHLORIDE [Concomitant]
  3. AUTOPEN 24 [Suspect]
  4. FERROUS SULFATE TAB [Concomitant]
  5. GLIMEPIRIDE [Concomitant]
  6. FOLIC ACID [Concomitant]
  7. PANTOPRAZOLE [Concomitant]

REACTIONS (6)
  - CHEST PAIN [None]
  - MYOCARDIAL INFARCTION [None]
  - CARDIAC ENZYMES INCREASED [None]
  - INJECTION SITE HAEMORRHAGE [None]
  - FEELING ABNORMAL [None]
  - AGITATION [None]
